FAERS Safety Report 6366968-1 (Version None)
Quarter: 2009Q3

REPORT INFORMATION
  Report Type: 
  Country: None (occurrence: None)
  Receive Date: 20090921
  Receipt Date: 20090911
  Transmission Date: 20100115
  Serious: Yes (Other)
  Sender: FDA-Public Use
  Company Number: US-PFIZER INC-2009199854

PATIENT
  Sex: Female

DRUGS (4)
  1. PROVERA [Suspect]
     Indication: HORMONE REPLACEMENT THERAPY
     Dosage: 2.5 ONCE DAILY
     Route: 048
     Dates: start: 19941103, end: 19960509
  2. PREMARIN [Suspect]
     Indication: HORMONE REPLACEMENT THERAPY
     Dosage: 0.625 MG, 1X/DAY
     Dates: start: 19941103, end: 19960509
  3. PREMARIN [Suspect]
     Dosage: UNK
     Dates: start: 19941103, end: 19960509
  4. PREMPRO [Suspect]
     Indication: HORMONE REPLACEMENT THERAPY
     Dosage: 0.25 MG, 1X/DAY
     Dates: start: 19960509, end: 20011127

REACTIONS (1)
  - BREAST CANCER FEMALE [None]
